FAERS Safety Report 6327201-X (Version None)
Quarter: 2009Q3

REPORT INFORMATION
  Report Type: 
  Country: None (occurrence: None)
  Receive Date: 20090825
  Receipt Date: 20090814
  Transmission Date: 20100115
  Serious: Yes (Death, Hospitalization)
  Sender: FDA-Public Use
  Company Number: SE-AVENTIS-200918790GDDC

PATIENT
  Age: 63 Year
  Sex: Female

DRUGS (9)
  1. DESMOPRESSIN ACETATE [Suspect]
     Indication: NOCTURIA
     Route: 048
     Dates: start: 20090115
  2. TOLTERODINE TARTRATE [Concomitant]
  3. OMEPRAZOL [Concomitant]
  4. TRYPTIZOL                          /00002202/ [Concomitant]
  5. STESOLID [Concomitant]
  6. PARACETAMOL [Concomitant]
  7. STILNOCT [Concomitant]
  8. REMERON [Concomitant]
  9. VITAMIN B-COMPLEX, INCL COMBINATIONS [Concomitant]

REACTIONS (2)
  - HYPERPYREXIA [None]
  - SEPSIS [None]
